FAERS Safety Report 20834705 (Version 6)
Quarter: 2023Q1

REPORT INFORMATION
  Report Type: Report from Study
  Country: US (occurrence: US)
  Receive Date: 20220516
  Receipt Date: 20230217
  Transmission Date: 20230417
  Serious: No
  Sender: FDA-Public Use
  Company Number: US-NOVARTISTESTPH-NVSC2022US111869

PATIENT
  Sex: Male

DRUGS (1)
  1. KESIMPTA [Suspect]
     Active Substance: OFATUMUMAB
     Indication: Multiple sclerosis
     Dosage: UNK
     Route: 058
     Dates: start: 20220417

REACTIONS (6)
  - Dysstasia [Unknown]
  - Limb discomfort [Unknown]
  - Hypersomnia [Unknown]
  - Anger [Unknown]
  - Back pain [Unknown]
  - Headache [Unknown]
